FAERS Safety Report 12319476 (Version 1)
Quarter: 2016Q2

REPORT INFORMATION
  Report Type: Spontaneous
  Country: US (occurrence: US)
  Receive Date: 20160429
  Receipt Date: 20160429
  Transmission Date: 20160815
  Serious: No
  Sender: FDA-Public Use
  Company Number: US-BAYER-2016-082210

PATIENT
  Age: 55 Year
  Sex: Female

DRUGS (1)
  1. CLIMARA [Suspect]
     Active Substance: ESTRADIOL
     Indication: OESTROGEN THERAPY
     Dosage: UNK
     Route: 062

REACTIONS (4)
  - Dermatitis contact [None]
  - Application site rash [Recovered/Resolved]
  - Application site rash [None]
  - Intentional product use issue [None]

NARRATIVE: CASE EVENT DATE: 201604
